FAERS Safety Report 6694029-0 (Version None)
Quarter: 2010Q2

REPORT INFORMATION
  Report Type: 
  Country: None (occurrence: None)
  Receive Date: 20100423
  Receipt Date: 20100412
  Transmission Date: 20101027
  Serious: Yes (Other)
  Sender: FDA-Public Use
  Company Number: US-JNJCH-2010009205

PATIENT
  Age: 17 Year
  Sex: Female

DRUGS (3)
  1. BENADRYL [Suspect]
     Indication: HYPERSENSITIVITY
     Dosage: TEXT:TWO ^PILLS^ ONCE
     Route: 048
     Dates: start: 20100410, end: 20100411
  2. ALBUTEROL [Concomitant]
     Indication: ASTHMA
     Dosage: TEXT:UNSPECIFIED
     Route: 065
  3. PROAIR HFA [Concomitant]
     Indication: DRUG USE FOR UNKNOWN INDICATION
     Dosage: TEXT:UNSPECIFIED
     Route: 055

REACTIONS (6)
  - ASTHMA [None]
  - COUGH [None]
  - EYE SWELLING [None]
  - HYPERSENSITIVITY [None]
  - NASAL CONGESTION [None]
  - SOMNOLENCE [None]
